FAERS Safety Report 11549704 (Version 1)
Quarter: 2015Q3

REPORT INFORMATION
  Report Type: Spontaneous
  Country: CN (occurrence: CN)
  Receive Date: 20150924
  Receipt Date: 20150924
  Transmission Date: 20151125
  Serious: Yes (Other)
  Sender: FDA-Public Use
  Company Number: CN-PFIZER INC-2015315829

PATIENT
  Age: 72 Year

DRUGS (6)
  1. PLAVIX [Concomitant]
     Active Substance: CLOPIDOGREL BISULFATE
     Route: 048
  2. METOPROLOL SUCCINATE SUSTAINED-RELEASE TABLETS [Concomitant]
     Route: 048
  3. ACERTIL [Concomitant]
     Route: 048
  4. ASPIRIN BAYER [Concomitant]
     Active Substance: ASPIRIN
     Route: 048
  5. LIPITOR [Suspect]
     Active Substance: ATORVASTATIN CALCIUM
     Route: 048
  6. ISOSORBIDE MONONITRATE. [Concomitant]
     Active Substance: ISOSORBIDE MONONITRATE
     Route: 048

REACTIONS (1)
  - Myocardial necrosis marker increased [Unknown]
